FAERS Safety Report 6665822-5 (Version None)
Quarter: 2010Q2

REPORT INFORMATION
  Report Type: 
  Country: None (occurrence: None)
  Receive Date: 20100402
  Receipt Date: 20100323
  Transmission Date: 20101027
  Serious: Yes (Death, Life-Threatening, Hospitalization, Other)
  Sender: FDA-Public Use
  Company Number: JP-ROCHE-673173

PATIENT
  Sex: Female
  Weight: 38 kg

DRUGS (23)
  1. AVASTIN [Suspect]
     Indication: COLON CANCER METASTATIC
     Route: 041
     Dates: start: 20090602
  2. AVASTIN [Suspect]
     Route: 041
     Dates: start: 20090701, end: 20090916
  3. AVASTIN [Suspect]
     Route: 041
     Dates: start: 20091007, end: 20091007
  4. AVASTIN [Suspect]
     Route: 041
     Dates: start: 20091104, end: 20091118
  5. ELPLAT [Concomitant]
     Indication: COLON CANCER METASTATIC
     Route: 041
     Dates: start: 20090602, end: 20090916
  6. LEVOFOLINATE [Concomitant]
     Route: 041
     Dates: start: 20090602, end: 20090916
  7. LEVOFOLINATE [Concomitant]
     Route: 041
     Dates: start: 20091007, end: 20091007
  8. LEVOFOLINATE [Concomitant]
     Route: 041
     Dates: start: 20091104, end: 20091118
  9. FLUOROURACIL [Concomitant]
     Route: 040
     Dates: start: 20090602, end: 20090916
  10. FLUOROURACIL [Concomitant]
     Route: 040
     Dates: start: 20090602, end: 20090901
  11. FLUOROURACIL [Concomitant]
     Route: 040
     Dates: start: 20091007, end: 20091007
  12. FLUOROURACIL [Concomitant]
     Route: 040
     Dates: start: 20091007, end: 20091001
  13. FLUOROURACIL [Concomitant]
     Route: 040
     Dates: start: 20091104, end: 20091118
  14. FLUOROURACIL [Concomitant]
     Route: 040
     Dates: start: 20091104, end: 20091101
  15. CAMPTOSAR [Concomitant]
     Route: 041
     Dates: start: 20091007, end: 20091007
  16. CAMPTOSAR [Concomitant]
     Route: 041
     Dates: start: 20091104, end: 20091118
  17. DECADRON [Concomitant]
     Route: 041
     Dates: start: 20090602, end: 20090916
  18. DECADRON [Concomitant]
     Route: 041
     Dates: start: 20091007, end: 20091007
  19. DECADRON [Concomitant]
     Route: 041
     Dates: start: 20091104, end: 20091118
  20. GRANISETRON [Concomitant]
     Route: 041
     Dates: start: 20090602, end: 20090916
  21. GRANISETRON [Concomitant]
     Route: 041
     Dates: start: 20091007, end: 20091007
  22. GRANISETRON [Concomitant]
     Route: 041
     Dates: start: 20091104, end: 20091118
  23. LOXONIN [Concomitant]
     Route: 048
     Dates: start: 20090530, end: 20091130

REACTIONS (5)
  - EPISTAXIS [None]
  - HEPATIC FAILURE [None]
  - ILEAL PERFORATION [None]
  - ILEAL ULCER [None]
  - SEPTIC SHOCK [None]
